FAERS Safety Report 19716463 (Version 2)
Quarter: 2021Q4

REPORT INFORMATION
  Report Type: Spontaneous
  Country: CA (occurrence: CA)
  Receive Date: 20210818
  Receipt Date: 20211230
  Transmission Date: 20220303
  Serious: Yes (Hospitalization, Other)
  Sender: FDA-Public Use
  Company Number: CA-009507513-1801CAN014527

PATIENT
  Age: 48 Year
  Sex: Female
  Weight: 106.9 kg

DRUGS (134)
  1. DIPROSONE [Suspect]
     Active Substance: BETAMETHASONE DIPROPIONATE
     Indication: Tardive dyskinesia
     Dosage: 2 EVERY 1 DAYS, (BID)
     Route: 048
     Dates: start: 20170209
  2. DIPROSONE [Suspect]
     Active Substance: BETAMETHASONE DIPROPIONATE
     Dosage: 2 EVERY 1 DAYS, (BID)
     Route: 065
  3. DIPROSONE [Suspect]
     Active Substance: BETAMETHASONE DIPROPIONATE
     Dosage: 1 EVERY 12 HOURS
     Route: 048
  4. DIPROSONE [Suspect]
     Active Substance: BETAMETHASONE DIPROPIONATE
     Dosage: 2 EVERY 1 DAYS, (BID)
     Route: 065
  5. DIPROSONE [Suspect]
     Active Substance: BETAMETHASONE DIPROPIONATE
     Dosage: 1 EVERY 12 HOURS
     Route: 048
  6. DIPROSONE [Suspect]
     Active Substance: BETAMETHASONE DIPROPIONATE
     Dosage: 2 EVERY 1 DAYS, (BID)
     Route: 065
  7. DIPROSONE [Suspect]
     Active Substance: BETAMETHASONE DIPROPIONATE
     Dosage: 1 EVERY 12 HOURS
     Route: 048
  8. DIPROSONE [Suspect]
     Active Substance: BETAMETHASONE DIPROPIONATE
     Dosage: 2 EVERY 1 DAYS, (BID)
     Route: 065
  9. DIPROSONE [Suspect]
     Active Substance: BETAMETHASONE DIPROPIONATE
     Dosage: 1 EVERY 12 HOURS
     Route: 048
  10. DIPROSONE [Suspect]
     Active Substance: BETAMETHASONE DIPROPIONATE
     Dosage: UNK, 2X/DAY
     Route: 065
  11. APREPITANT [Suspect]
     Active Substance: APREPITANT
     Indication: Supportive care
     Dosage: 80.0 MILLIGRAM; 1 EVERY 1 DAY(S) (QD)/ 80MG, 1X/DAY
     Route: 048
     Dates: start: 20170331, end: 20170401
  12. APREPITANT [Suspect]
     Active Substance: APREPITANT
     Indication: Product used for unknown indication
     Dosage: 125.0 MILLIGRAM; 1 EVERY 1 DAY(S) (QD)
     Route: 048
  13. APREPITANT [Suspect]
     Active Substance: APREPITANT
     Dosage: 50.0 MILLIGRAM, QD (1 EVERY 1 DAY)
     Route: 065
  14. APREPITANT [Suspect]
     Active Substance: APREPITANT
     Dosage: UNK, EVERY DAY
     Route: 048
  15. APREPITANT [Suspect]
     Active Substance: APREPITANT
     Dosage: UNK, EVERY DAY
     Route: 048
  16. APREPITANT [Suspect]
     Active Substance: APREPITANT
     Dosage: UNK, EVERY DAY
     Route: 048
  17. APREPITANT [Suspect]
     Active Substance: APREPITANT
     Dosage: UNK, EVERY DAY
     Route: 048
  18. APREPITANT [Suspect]
     Active Substance: APREPITANT
     Dosage: UNK, EVERY DAY
     Route: 048
  19. FOSAPREPITANT DIMEGLUMINE [Suspect]
     Active Substance: FOSAPREPITANT DIMEGLUMINE
     Indication: Supportive care
     Dosage: DOSAGE FORM: POWDER FOR SOLUTION FOR INJECTION; 80.0 MILLIGRAM, 1 EVERY 1 DAY(S) (QD)
     Route: 048
  20. FOSAPREPITANT DIMEGLUMINE [Suspect]
     Active Substance: FOSAPREPITANT DIMEGLUMINE
     Dosage: DOSAGE FORM: POWDER FOR SOLUTION FOR INJECTION; 125 MILLIGRAM, QD
     Route: 048
  21. DEXAMETHASONE [Suspect]
     Active Substance: DEXAMETHASONE
     Indication: Supportive care
     Dosage: 20.0 MILLIGRAM; 1 EVERY 1 DAY(S) (QD) DOSAGE FORM: NOT SPECIFIED/ 20MG 1X/DAY
     Route: 048
     Dates: start: 20170329, end: 20170330
  22. DEXAMETHASONE [Suspect]
     Active Substance: DEXAMETHASONE
     Dosage: UNK
     Route: 048
  23. DEXAMETHASONE [Suspect]
     Active Substance: DEXAMETHASONE
     Dosage: UNK
     Route: 048
  24. DEXAMETHASONE [Suspect]
     Active Substance: DEXAMETHASONE
     Dosage: UNK
     Route: 048
  25. DEXAMETHASONE [Suspect]
     Active Substance: DEXAMETHASONE
     Dosage: UNK
     Route: 048
  26. DEXAMETHASONE [Suspect]
     Active Substance: DEXAMETHASONE
     Dosage: UNK
  27. DOXORUBICIN HYDROCHLORIDE [Suspect]
     Active Substance: DOXORUBICIN HYDROCHLORIDE
     Indication: Breast cancer
     Dosage: DOSAGE FORM: SOLUTION INTRAVENOUS/INJETION; 136.0 MILLIGRAM, 1 EVERY 14 DAY(S) / 1 EVERY 2 WEEK(S)/
     Route: 042
     Dates: start: 20161215, end: 20170126
  28. DOXORUBICIN HYDROCHLORIDE [Suspect]
     Active Substance: DOXORUBICIN HYDROCHLORIDE
     Dosage: 136 MILLIGRAM, 1 EVERY 4 HOURS (Q4H)
     Route: 042
  29. DOXORUBICIN HYDROCHLORIDE [Suspect]
     Active Substance: DOXORUBICIN HYDROCHLORIDE
     Dosage: 136 MILLIGRAM, EVERY 2 WEEKS
     Route: 042
  30. DOXORUBICIN HYDROCHLORIDE [Suspect]
     Active Substance: DOXORUBICIN HYDROCHLORIDE
     Dosage: 136 MILLIGRAM, 1 EVERY 4 DAYS (Q4D)
     Route: 042
  31. DOXORUBICIN HYDROCHLORIDE [Suspect]
     Active Substance: DOXORUBICIN HYDROCHLORIDE
     Dosage: 136 MILLIGRAM, CYCLIC (1 EVERY 14 DAYS)
     Route: 042
  32. ENOXAPARIN SODIUM [Suspect]
     Active Substance: ENOXAPARIN SODIUM
     Indication: Tardive dyskinesia
     Dosage: 150.0 MILLIGRAM; 1 EVERY 1 DAY(S) (QD)
     Route: 058
     Dates: start: 20161222
  33. ENOXAPARIN SODIUM [Suspect]
     Active Substance: ENOXAPARIN SODIUM
     Dosage: UNK, 1 EVERY 1 DAYS (QD)
     Route: 058
  34. ENOXAPARIN SODIUM [Suspect]
     Active Substance: ENOXAPARIN SODIUM
     Dosage: UNK, 1 EVERY 1 DAYS (QD)
     Route: 058
  35. ENOXAPARIN SODIUM [Suspect]
     Active Substance: ENOXAPARIN SODIUM
     Dosage: UNK, 1 EVERY 1 DAYS (QD)
     Route: 058
  36. ENOXAPARIN SODIUM [Suspect]
     Active Substance: ENOXAPARIN SODIUM
     Dosage: UNK, 1 EVERY 1 DAYS (QD)
     Route: 058
  37. LEVOFLOXACIN [Suspect]
     Active Substance: LEVOFLOXACIN
     Indication: Tardive dyskinesia
     Dosage: 500.0 MILLIGRAM; 1 EVERY 1 DAY(S) (QD), DOSAGE FORM NOT SPECIFIED
     Route: 048
     Dates: start: 20170209
  38. LEVOFLOXACIN [Suspect]
     Active Substance: LEVOFLOXACIN
     Dosage: 500 MILLIGRAM
     Route: 048
  39. LEVOFLOXACIN [Suspect]
     Active Substance: LEVOFLOXACIN
     Dosage: DOSAGE FORM NOT SPECIFIED; 1 EVERY 1 DAYS
     Route: 048
  40. LEVOFLOXACIN [Suspect]
     Active Substance: LEVOFLOXACIN
     Dosage: DOSAGE FORM NOT SPECIFIED; 1 EVERY 1 DAYS
     Route: 048
  41. LEVOFLOXACIN [Suspect]
     Active Substance: LEVOFLOXACIN
     Dosage: DOSAGE FORM NOT SPECIFIED; 1 EVERY 1 DAYS
     Route: 048
  42. LEVOFLOXACIN [Suspect]
     Active Substance: LEVOFLOXACIN
     Dosage: DOSAGE FORM NOT SPECIFIED; 1 EVERY 1 DAYS
     Route: 048
  43. LEVOFLOXACIN [Suspect]
     Active Substance: LEVOFLOXACIN
     Dosage: 500.0 MG, 1X/DAY
     Route: 048
  44. LORAZEPAM [Suspect]
     Active Substance: LORAZEPAM
     Indication: Tardive dyskinesia
     Dosage: DOSAGE FORM NOT SPECIFIED; 2 EVERY 1 DAY
     Route: 048
  45. LORAZEPAM [Suspect]
     Active Substance: LORAZEPAM
     Dosage: DOSAGE FORM NOT SPECIFIED; 2 EVERY 1 DAY
     Route: 048
  46. LORAZEPAM [Suspect]
     Active Substance: LORAZEPAM
     Dosage: DOSAGE FORM NOT SPECIFIED; 2 EVERY 1 DAY
     Route: 048
  47. LORAZEPAM [Suspect]
     Active Substance: LORAZEPAM
     Dosage: DOSAGE FORM NOT SPECIFIED; 2 EVERY 1 DAY
     Route: 048
  48. LORAZEPAM [Suspect]
     Active Substance: LORAZEPAM
     Dosage: DOSAGE FORM NOT SPECIFIED; 1 EVERY 12 HOURS
     Route: 048
  49. LORAZEPAM [Suspect]
     Active Substance: LORAZEPAM
     Dosage: 0.5 MILLIGRAM, 2 EVERY 1 DAYS / 0.5 MG 2X/DAY
     Route: 048
     Dates: start: 20170123
  50. METOCLOPRAMIDE [Suspect]
     Active Substance: METOCLOPRAMIDE
     Indication: Tardive dyskinesia
     Dosage: 4 EVERY 1 DAY (QID)
     Route: 048
  51. METOCLOPRAMIDE [Suspect]
     Active Substance: METOCLOPRAMIDE
     Dosage: 4 EVERY 1 DAY (QID)
     Route: 048
  52. METOCLOPRAMIDE [Suspect]
     Active Substance: METOCLOPRAMIDE
     Dosage: 1 EVERY 6 HOURS
     Route: 048
  53. METOCLOPRAMIDE [Suspect]
     Active Substance: METOCLOPRAMIDE
     Dosage: 4 EVERY 1 DAY (QID)
     Route: 048
  54. METOCLOPRAMIDE [Suspect]
     Active Substance: METOCLOPRAMIDE
     Dosage: 4 EVERY 1 DAY (QID)
     Route: 048
  55. METOCLOPRAMIDE [Suspect]
     Active Substance: METOCLOPRAMIDE
     Dosage: 4 EVERY 1 DAY (QID)
     Route: 048
  56. METOCLOPRAMIDE [Suspect]
     Active Substance: METOCLOPRAMIDE
     Dosage: 10 MILLIGRAM, 4 EVERY 1 DAYS; 10 MG 4X/DAY (1 EVERY 6 HOURS)
     Route: 048
     Dates: start: 20161208
  57. PACLITAXEL [Suspect]
     Active Substance: PACLITAXEL
     Indication: Breast cancer
     Dosage: 303 MILLIGRAM, UNK; DOSAGE FORM: LIQUID INTRAVENOUS
     Route: 042
     Dates: start: 20170330, end: 20170330
  58. PACLITAXEL [Suspect]
     Active Substance: PACLITAXEL
     Indication: Supportive care
     Dosage: 393 MILLIGRAM, UNK; DOSAGE FORM: LIQUID INTRAVENOUS
     Route: 042
  59. PACLITAXEL [Suspect]
     Active Substance: PACLITAXEL
     Dosage: 243 MILLIGRAM, UNK; DOSAGE FORM: LIQUID INTRAVENOUS
     Route: 042
  60. PACLITAXEL [Suspect]
     Active Substance: PACLITAXEL
     Dosage: UNK; DOSAGE FORM: LIQUID INTRAVENOUS
     Route: 065
  61. PACLITAXEL [Suspect]
     Active Substance: PACLITAXEL
     Dosage: 303 MILLIGRAM, UNK
     Route: 042
  62. PACLITAXEL [Suspect]
     Active Substance: PACLITAXEL
     Dosage: DOSAGE FORM: LIQUID INTRAVENOUS
     Route: 042
  63. PACLITAXEL [Suspect]
     Active Substance: PACLITAXEL
     Dosage: 393 MILLIGRAM
     Route: 042
  64. PACLITAXEL [Suspect]
     Active Substance: PACLITAXEL
     Dosage: UNK; DOSAGE FORM: LIQUID INTRAVENOUS
     Route: 065
  65. PACLITAXEL [Suspect]
     Active Substance: PACLITAXEL
     Dosage: DOSAGE FORM: LIQUID INTRAVENOUS
     Route: 042
  66. PACLITAXEL [Suspect]
     Active Substance: PACLITAXEL
     Dosage: UNK; DOSAGE FORM: LIQUID INTRAVENOUS
     Route: 065
  67. PACLITAXEL [Suspect]
     Active Substance: PACLITAXEL
     Dosage: DOSAGE FORM: LIQUID INTRAVENOUS
     Route: 042
  68. PACLITAXEL [Suspect]
     Active Substance: PACLITAXEL
     Dosage: UNK; DOSAGE FORM: LIQUID INTRAVENOUS
     Route: 065
  69. PACLITAXEL [Suspect]
     Active Substance: PACLITAXEL
     Dosage: DOSAGE FORM: LIQUID INTRAVENOUS
     Route: 042
  70. PACLITAXEL [Suspect]
     Active Substance: PACLITAXEL
     Dosage: UNK; DOSAGE FORM: LIQUID INTRAVENOUS
     Route: 065
  71. PACLITAXEL [Suspect]
     Active Substance: PACLITAXEL
     Dosage: DOSAGE FORM: LIQUID INTRAVENOUS
     Route: 042
  72. PACLITAXEL [Suspect]
     Active Substance: PACLITAXEL
     Dosage: 393 MILLIGRAM
     Route: 042
  73. CYCLOPHOSPHAMIDE [Suspect]
     Active Substance: CYCLOPHOSPHAMIDE
     Indication: Breast cancer
     Dosage: 1360 MG, 1 EVERY 2 WEEKS (CYCLICAL)
     Route: 042
  74. CYCLOPHOSPHAMIDE [Suspect]
     Active Substance: CYCLOPHOSPHAMIDE
     Indication: Tardive dyskinesia
     Dosage: 243 MILLIGRAM, UNK
     Route: 042
  75. CYCLOPHOSPHAMIDE [Suspect]
     Active Substance: CYCLOPHOSPHAMIDE
     Dosage: DOSAGE FORM NOT SPECIFIED
     Route: 042
  76. CYCLOPHOSPHAMIDE [Suspect]
     Active Substance: CYCLOPHOSPHAMIDE
     Dosage: 1360 MG, 1 EVERY 14 DAYS
     Route: 042
  77. CYCLOPHOSPHAMIDE [Suspect]
     Active Substance: CYCLOPHOSPHAMIDE
     Dosage: 1360 MG, 1 EVERY 2 WEEKS (CYCLICAL)
     Route: 042
  78. CYCLOPHOSPHAMIDE [Suspect]
     Active Substance: CYCLOPHOSPHAMIDE
     Dosage: DOSAGE FORM NOT SPECIFIED
     Route: 042
  79. CYCLOPHOSPHAMIDE [Suspect]
     Active Substance: CYCLOPHOSPHAMIDE
     Dosage: 1360 MG, 1 EVERY 14 DAYS
     Route: 042
  80. CYCLOPHOSPHAMIDE [Suspect]
     Active Substance: CYCLOPHOSPHAMIDE
     Dosage: 1360 MILLIGRAM
     Route: 042
     Dates: start: 20161201, end: 20170126
  81. CYCLOPHOSPHAMIDE [Suspect]
     Active Substance: CYCLOPHOSPHAMIDE
     Dosage: 1360 MG, 1 EVERY 2 WEEKS (CYCLICAL)
     Route: 042
  82. CYCLOPHOSPHAMIDE [Suspect]
     Active Substance: CYCLOPHOSPHAMIDE
     Dosage: DOSAGE FORM NOT SPECIFIED
     Route: 042
  83. CYCLOPHOSPHAMIDE [Suspect]
     Active Substance: CYCLOPHOSPHAMIDE
     Dosage: 1360 MG, 1 EVERY 14 DAYS
     Route: 042
  84. CYCLOPHOSPHAMIDE [Suspect]
     Active Substance: CYCLOPHOSPHAMIDE
     Dosage: 1360 MILLIGRAM
     Route: 042
  85. CYCLOPHOSPHAMIDE [Suspect]
     Active Substance: CYCLOPHOSPHAMIDE
     Dosage: 1360 MG, 1 EVERY 2 WEEKS (CYCLICAL)
     Route: 042
  86. CYCLOPHOSPHAMIDE [Suspect]
     Active Substance: CYCLOPHOSPHAMIDE
     Dosage: DOSAGE FORM NOT SPECIFIED
     Route: 042
  87. CYCLOPHOSPHAMIDE [Suspect]
     Active Substance: CYCLOPHOSPHAMIDE
     Dosage: 1360 MG, 1 EVERY 14 DAYS 2000MG/VIAL
     Route: 042
  88. CYCLOPHOSPHAMIDE [Suspect]
     Active Substance: CYCLOPHOSPHAMIDE
     Dosage: 1360 MILLIGRAM
     Route: 042
  89. CYCLOPHOSPHAMIDE [Suspect]
     Active Substance: CYCLOPHOSPHAMIDE
     Dosage: 1360 MG, 1 EVERY 2 WEEKS (CYCLICAL)
     Route: 042
  90. CYCLOPHOSPHAMIDE [Suspect]
     Active Substance: CYCLOPHOSPHAMIDE
     Dosage: DOSAGE FORM NOT SPECIFIED
     Route: 042
  91. CYCLOPHOSPHAMIDE [Suspect]
     Active Substance: CYCLOPHOSPHAMIDE
     Dosage: 1360 MG, 1 EVERY 14 DAYS
     Route: 042
  92. CYCLOPHOSPHAMIDE [Suspect]
     Active Substance: CYCLOPHOSPHAMIDE
     Dosage: 1360 MILLIGRAM
     Route: 042
  93. RANITIDINE [Suspect]
     Active Substance: RANITIDINE
     Indication: Tardive dyskinesia
     Dosage: 2 EVERY 1 DAY
     Route: 048
  94. RANITIDINE [Suspect]
     Active Substance: RANITIDINE
     Dosage: 150 MILLIGRAM, 1 EVERY 2 WEEKS (CYCLICAL)
     Route: 048
  95. RANITIDINE [Suspect]
     Active Substance: RANITIDINE
     Dosage: 2 EVERY 1 DAY
     Route: 048
  96. RANITIDINE [Suspect]
     Active Substance: RANITIDINE
     Dosage: 150 MILLIGRAM, 1 EVERY 12 HOURS
     Route: 048
  97. RANITIDINE [Suspect]
     Active Substance: RANITIDINE
     Dosage: 2 EVERY 1 DAY
     Route: 048
  98. RANITIDINE [Suspect]
     Active Substance: RANITIDINE
     Dosage: 2 EVERY 1 DAY
     Route: 048
  99. RANITIDINE [Suspect]
     Active Substance: RANITIDINE
     Dosage: 2 EVERY 1 DAY
     Route: 048
  100. RANITIDINE [Suspect]
     Active Substance: RANITIDINE
     Dosage: 150 MG 2 EVERY 1 DAY; 150 MG 2X/DAY
     Route: 048
  101. TRASTUZUMAB [Suspect]
     Active Substance: TRASTUZUMAB
     Indication: Tardive dyskinesia
     Dosage: 626.0 MILLIGRAM
     Route: 065
  102. TRASTUZUMAB [Suspect]
     Active Substance: TRASTUZUMAB
     Dosage: 866.0 MILLIGRAM
     Route: 065
  103. TRASTUZUMAB [Suspect]
     Active Substance: TRASTUZUMAB
     Dosage: UNK
     Route: 065
  104. TRASTUZUMAB [Suspect]
     Active Substance: TRASTUZUMAB
     Dosage: 866.0 MILLIGRAM
     Route: 065
  105. TRASTUZUMAB [Suspect]
     Active Substance: TRASTUZUMAB
     Dosage: 625 MILLIGRAM
     Route: 065
  106. TRASTUZUMAB [Suspect]
     Active Substance: TRASTUZUMAB
     Dosage: UNK
     Route: 065
  107. TRASTUZUMAB [Suspect]
     Active Substance: TRASTUZUMAB
     Dosage: UNK
     Route: 065
  108. TRASTUZUMAB [Suspect]
     Active Substance: TRASTUZUMAB
     Dosage: UNK
     Route: 065
  109. TRASTUZUMAB [Suspect]
     Active Substance: TRASTUZUMAB
     Dosage: UNK
     Route: 065
  110. TYLENOL WITH CODEINE [Suspect]
     Active Substance: ACETAMINOPHEN\CODEINE PHOSPHATE
     Indication: Tardive dyskinesia
     Dosage: STRENGTH: 160 MG (+) 8MG/5ML, 30.0 MILLIGRAM; 1 EVERY 4 HOUR(S)/ 6 EVERY 1 DAY(S) (Q4H)
     Route: 065
  111. TYLENOL WITH CODEINE [Suspect]
     Active Substance: ACETAMINOPHEN\CODEINE PHOSPHATE
     Dosage: DOSAGE FORM NOT SPECIFIED; 1 EVERY 4 HOURS
     Route: 065
  112. TYLENOL WITH CODEINE [Suspect]
     Active Substance: ACETAMINOPHEN\CODEINE PHOSPHATE
     Dosage: DOSAGE FORM NOT SPECIFIED; 1 EVERY 4 HOURS
     Route: 065
  113. TYLENOL WITH CODEINE [Suspect]
     Active Substance: ACETAMINOPHEN\CODEINE PHOSPHATE
     Dosage: DOSAGE FORM NOT SPECIFIED; 1 EVERY 4 HOURS
     Route: 065
  114. TYLENOL WITH CODEINE [Suspect]
     Active Substance: ACETAMINOPHEN\CODEINE PHOSPHATE
     Dosage: DOSAGE FORM NOT SPECIFIED; 1 EVERY 4 HOURS
     Route: 065
  115. TYLENOL WITH CODEINE [Suspect]
     Active Substance: ACETAMINOPHEN\CODEINE PHOSPHATE
     Dosage: DOSAGE FORM NOT SPECIFIED; 1 EVERY 4 HOURS
     Route: 065
  116. TYLENOL WITH CODEINE [Suspect]
     Active Substance: ACETAMINOPHEN\CODEINE PHOSPHATE
     Dosage: UNK
  117. ZOFRAN [Suspect]
     Active Substance: ONDANSETRON HYDROCHLORIDE
     Indication: Supportive care
     Dosage: 8.0 MILLIGRAM
     Route: 048
  118. ONDANSETRON HYDROCHLORIDE [Suspect]
     Active Substance: ONDANSETRON HYDROCHLORIDE
     Indication: Supportive care
     Dosage: 8.0 MILLIGRAM, FREQUENCY 6 EVERY (1) DAY
     Route: 048
  119. ONDANSETRON HYDROCHLORIDE [Suspect]
     Active Substance: ONDANSETRON HYDROCHLORIDE
     Dosage: UNK
     Route: 048
  120. ONDANSETRON HYDROCHLORIDE [Suspect]
     Active Substance: ONDANSETRON HYDROCHLORIDE
     Dosage: 8 MILLIGRAM, QD
     Route: 048
  121. ONDANSETRON HYDROCHLORIDE [Suspect]
     Active Substance: ONDANSETRON HYDROCHLORIDE
     Dosage: 8 MILLIGRAM, QD
     Route: 048
  122. ONDANSETRON HYDROCHLORIDE [Suspect]
     Active Substance: ONDANSETRON HYDROCHLORIDE
     Dosage: UNK
     Route: 048
  123. ONDANSETRON HYDROCHLORIDE [Suspect]
     Active Substance: ONDANSETRON HYDROCHLORIDE
     Dosage: UNK
     Route: 048
  124. ONDANSETRON HYDROCHLORIDE [Suspect]
     Active Substance: ONDANSETRON HYDROCHLORIDE
     Dosage: UNK
     Route: 048
  125. NEUPOGEN [Suspect]
     Active Substance: FILGRASTIM
     Indication: Supportive care
     Dosage: 480 MICROGRAM, 1 EVERY 1 DAY (QD)
     Route: 065
  126. NEUPOGEN [Suspect]
     Active Substance: FILGRASTIM
     Dosage: 480 MILLIGRAM; 1 EVERY 1 DAY(S) (QD)
     Route: 048
  127. NEUPOGEN [Suspect]
     Active Substance: FILGRASTIM
     Dosage: UNK, 1 EVERY 1 DAYS (QD)
     Route: 065
  128. NEUPOGEN [Suspect]
     Active Substance: FILGRASTIM
     Dosage: 125 MILLIGRAM; 1 EVERY 1 DAY(S) (QD)
     Route: 048
  129. NEUPOGEN [Suspect]
     Active Substance: FILGRASTIM
     Dosage: UNK, 1 EVERY 1 DAYS (QD)
     Route: 065
  130. NEUPOGEN [Suspect]
     Active Substance: FILGRASTIM
     Dosage: UNK, 1 EVERY 1 DAYS (QD)
     Route: 065
  131. NEULASTA [Suspect]
     Active Substance: PEGFILGRASTIM
     Indication: Supportive care
     Dosage: 6 MILLIGRAM
     Route: 058
  132. NEULASTA [Suspect]
     Active Substance: PEGFILGRASTIM
     Indication: Product used for unknown indication
     Dosage: UNK
     Route: 065
  133. NEULASTA [Suspect]
     Active Substance: PEGFILGRASTIM
     Dosage: UNK
     Route: 065
  134. NEULASTA [Suspect]
     Active Substance: PEGFILGRASTIM
     Dosage: UNK
     Route: 065

REACTIONS (12)
  - Atelectasis [Unknown]
  - Computerised tomogram thorax abnormal [Recovered/Resolved]
  - Gastrointestinal disorder [Recovered/Resolved]
  - Hypoxia [Recovered/Resolved]
  - Pyrexia [Recovered/Resolved]
  - Cough [Recovered/Resolved]
  - Dyspnoea [Recovered/Resolved]
  - Fatigue [Recovered/Resolved]
  - Nausea [Recovered/Resolved]
  - Rash [Unknown]
  - Off label use [Recovered/Resolved]
  - Lung opacity [Recovered/Resolved]

NARRATIVE: CASE EVENT DATE: 20170203
